FAERS Safety Report 7465873-7 (Version None)
Quarter: 2011Q2

REPORT INFORMATION
  Report Type: 
  Country: None (occurrence: None)
  Receive Date: 20110509
  Receipt Date: 20100426
  Transmission Date: 20111010
  Serious: No
  Sender: FDA-Public Use
  Company Number: US-ALEXION-A201000471

PATIENT
  Sex: Female

DRUGS (6)
  1. SOLIRIS [Suspect]
     Dosage: 900 MG, Q2W
     Route: 042
     Dates: start: 20071105
  2. SOLIRIS [Suspect]
     Indication: PAROXYSMAL NOCTURNAL HAEMOGLOBINURIA
     Dosage: 600 MG, QW X4
     Route: 042
     Dates: start: 20071001, end: 20071029
  3. PREDNISONE [Concomitant]
     Indication: PAROXYSMAL NOCTURNAL HAEMOGLOBINURIA
     Dosage: 8 MG, QD
     Route: 048
  4. DESFERAL [Suspect]
     Dosage: UNK
  5. PROCRIT                            /00909301/ [Concomitant]
     Dosage: 60000, 1XW, INJECTION
  6. FOLIC ACID [Concomitant]
     Dosage: 1 MG, QD
     Route: 048

REACTIONS (6)
  - WHITE BLOOD CELL COUNT DECREASED [None]
  - ERYTHEMA [None]
  - HAEMOGLOBIN DECREASED [None]
  - INFLAMMATORY PAIN [None]
  - INFLAMMATION [None]
  - SKIN INFECTION [None]
